FAERS Safety Report 12398189 (Version 3)
Quarter: 2016Q3

REPORT INFORMATION
  Report Type: Spontaneous
  Country: US (occurrence: US)
  Receive Date: 20160524
  Receipt Date: 20160802
  Transmission Date: 20161109
  Serious: Yes (Hospitalization)
  Sender: FDA-Public Use
  Company Number: US-PFIZER INC-2016268779

PATIENT
  Age: 79 Year
  Sex: Female
  Weight: 58.97 kg

DRUGS (10)
  1. ATORVASTATIN [Concomitant]
     Active Substance: ATORVASTATIN
     Dosage: 20MG ONE TABLET A DAY
     Route: 048
     Dates: start: 2015
  2. AMBIEN [Concomitant]
     Active Substance: ZOLPIDEM TARTRATE
     Dosage: 10 MG, UNK
  3. LOSARTAN. [Concomitant]
     Active Substance: LOSARTAN
     Indication: BLOOD PRESSURE ABNORMAL
     Dosage: 25MG ONE TABLET A DAY
     Route: 048
     Dates: start: 2008
  4. BABY ASPIRIN [Concomitant]
     Active Substance: ASPIRIN
     Dosage: UNK
  5. VITAMIN B12 [Concomitant]
     Active Substance: CYANOCOBALAMIN
     Dosage: 1000 UG, UNK
  6. OMERAZOLE [Concomitant]
     Active Substance: OMEPRAZOLE
     Dosage: 20 MG, UNK
  7. LYRICA [Suspect]
     Active Substance: PREGABALIN
     Indication: FIBROMYALGIA
     Dosage: 150 MG, 2X/DAY
  8. LYRICA [Suspect]
     Active Substance: PREGABALIN
     Dosage: 150 MG, UNK
     Dates: start: 2010
  9. SYNTHROID [Concomitant]
     Active Substance: LEVOTHYROXINE SODIUM
     Indication: THYROID DISORDER
     Dosage: 50MG ONCE A DAY
     Route: 048
     Dates: start: 1988
  10. HYZAAR [Concomitant]
     Active Substance: HYDROCHLOROTHIAZIDE\LOSARTAN POTASSIUM
     Dosage: 100 MG, UNK

REACTIONS (8)
  - Pyrexia [Recovered/Resolved]
  - Drug dose omission [Recovered/Resolved]
  - Withdrawal syndrome [Unknown]
  - Diarrhoea [Recovered/Resolved]
  - Nausea [Recovered/Resolved]
  - Abdominal pain upper [Recovered/Resolved]
  - Malaise [Recovered/Resolved]
  - Anxiety [Recovered/Resolved]

NARRATIVE: CASE EVENT DATE: 20160510
